FAERS Safety Report 6328768-8 (Version None)
Quarter: 2009Q3

REPORT INFORMATION
  Report Type: 
  Country: None (occurrence: None)
  Receive Date: 20090826
  Receipt Date: 20090818
  Transmission Date: 20100115
  Serious: Yes (Other)
  Sender: FDA-Public Use
  Company Number: JP-ALLERGAN-0911624US

PATIENT
  Age: 53 Year
  Sex: Female

DRUGS (2)
  1. BOTOX [Suspect]
     Indication: BLEPHAROSPASM
     Dosage: 67 UNITS, SINGLE
     Route: 030
  2. BOTOX [Suspect]
     Indication: TORTICOLLIS
     Dosage: 90 UNITS, SINGLE
     Route: 030

REACTIONS (5)
  - CHOKING SENSATION [None]
  - LAGOPHTHALMOS [None]
  - MASTICATION DISORDER [None]
  - MUSCULAR WEAKNESS [None]
  - TONGUE PARALYSIS [None]
